FAERS Safety Report 22291187 (Version 3)
Quarter: 2024Q1

REPORT INFORMATION
  Report Type: Spontaneous
  Country: US (occurrence: US)
  Receive Date: 20230506
  Receipt Date: 20240102
  Transmission Date: 20240410
  Serious: No
  Sender: FDA-Public Use
  Company Number: US-002147023-NVSC2023US101807

PATIENT
  Sex: Female

DRUGS (1)
  1. SANDIMMUNE [Suspect]
     Active Substance: CYCLOSPORINE
     Indication: Product used for unknown indication
     Dosage: 140 MG (MOUTH)
     Route: 048
     Dates: start: 20230308

REACTIONS (2)
  - Product physical consistency issue [Unknown]
  - Immunosuppressant drug level increased [Unknown]
